FAERS Safety Report 5809028-8 (Version None)
Quarter: 2008Q3

REPORT INFORMATION
  Report Type: 
  Country: None (occurrence: None)
  Receive Date: 20080710
  Receipt Date: 20080710
  Transmission Date: 20090109
  Serious: Yes (Other)
  Sender: FDA-Public Use
  Company Number: None

PATIENT
  Age: 37 Year
  Sex: Female
  Weight: 60.782 kg

DRUGS (2)
  1. LEVAQUIN [Suspect]
     Indication: APPENDICECTOMY
     Dosage: 1 TAB DAILY PO
     Route: 048
     Dates: start: 20080610, end: 20080617
  2. LEVAQUIN [Suspect]
     Indication: INFECTION PROPHYLAXIS
     Dosage: 1 TAB DAILY PO
     Route: 048
     Dates: start: 20080610, end: 20080617

REACTIONS (3)
  - FURUNCLE [None]
  - RASH ERYTHEMATOUS [None]
  - RASH PRURITIC [None]
